FAERS Safety Report 6182696-X (Version None)
Quarter: 2009Q2

REPORT INFORMATION
  Report Type: 
  Country: None (occurrence: None)
  Receive Date: 20090505
  Receipt Date: 20090428
  Transmission Date: 20091009
  Serious: Yes (Other)
  Sender: FDA-Public Use
  Company Number: 2008SP022406

PATIENT
  Age: 33 Year
  Sex: Female
  Weight: 55 kg

DRUGS (1)
  1. COPPERTONE GEL SPF 15 (OCTINOXATE/OXYBENZONE) [Suspect]
     Indication: PROPHYLAXIS AGAINST SOLAR RADIATION
     Dosage: ; ONCE; TOP
     Route: 061
     Dates: start: 20081031, end: 20081031

REACTIONS (2)
  - ASPHYXIA [None]
  - FEELING HOT [None]
